FAERS Safety Report 14754828 (Version 1)
Quarter: 2018Q2

REPORT INFORMATION
  Report Type: Report from Study
  Country: None (occurrence: US)
  Receive Date: 20180413
  Receipt Date: 20180413
  Transmission Date: 20180711
  Serious: Yes (Other)
  Sender: FDA-Public Use
  Company Number: US-ABBVIE-18K-163-2311135-00

PATIENT
  Age: 10 Year
  Sex: Male

DRUGS (4)
  1. HUMIRA [Suspect]
     Active Substance: ADALIMUMAB
     Indication: CROHN^S DISEASE
     Route: 058
     Dates: start: 20180205, end: 201802
  2. HUMIRA [Suspect]
     Active Substance: ADALIMUMAB
     Route: 058
     Dates: start: 201802, end: 201802
  3. HUMIRA [Suspect]
     Active Substance: ADALIMUMAB
     Route: 058
     Dates: start: 201803
  4. NALTREXONE [Concomitant]
     Active Substance: NALTREXONE
     Indication: CROHN^S DISEASE

REACTIONS (9)
  - Ear infection [Recovered/Resolved]
  - Penile oedema [Recovering/Resolving]
  - Urine flow decreased [Recovering/Resolving]
  - Weight increased [Not Recovered/Not Resolved]
  - Sinusitis [Recovered/Resolved]
  - Phimosis [Recovering/Resolving]
  - Piloerection [Recovering/Resolving]
  - Procedural pain [Recovering/Resolving]
  - Miliaria [Recovering/Resolving]

NARRATIVE: CASE EVENT DATE: 201802
